FAERS Safety Report 6103311-7 (Version None)
Quarter: 2009Q1

REPORT INFORMATION
  Report Type: 
  Country: None (occurrence: None)
  Receive Date: 20090305
  Receipt Date: 20090225
  Transmission Date: 20090719
  Serious: Yes (Death)
  Sender: FDA-Public Use
  Company Number: CA-SOLVAY-00309001126

PATIENT
  Age: 23235 Day
  Sex: Female

DRUGS (8)
  1. METHYLPHENIDATE [Concomitant]
     Indication: FATIGUE
     Dosage: DAILY DOSE: 5 MILLIGRAM(S)
     Route: 048
     Dates: start: 20080910, end: 20081002
  2. MARINOL [Suspect]
     Indication: DECREASED APPETITE
     Dosage: DAILY DOSE: 5 MILLIGRAM(S)
     Route: 048
     Dates: start: 20080903, end: 20080920
  3. SYNTHROID [Concomitant]
     Indication: HYPOTHYROIDISM
     Dosage: DAILY DOSE: .5 MILLIGRAM(S)
     Route: 048
  4. FOLIC ACID [Concomitant]
     Indication: PROPHYLAXIS
     Dosage: DAILY DOSE: 5 MILLIGRAM(S)
     Route: 048
  5. SLOW-FE [Concomitant]
     Indication: ANAEMIA
     Dosage: DAILY DOSE: 160 MILLIGRAM(S)
     Route: 048
  6. MAGNESIUM SULFATE [Concomitant]
     Indication: PROPHYLAXIS
     Dosage: DAILY DOSE: 50 MILLIGRAM(S)
     Route: 048
  7. ZOPICLONE [Concomitant]
     Indication: INSOMNIA
     Dosage: DAILY DOSE: 7.5 MILLIGRAM(S)
     Route: 048
  8. METOCLOPRAMIDE [Concomitant]
     Indication: NAUSEA
     Dosage: DAILY DOSE:  UNKNOWN
     Route: 048
     Dates: start: 20070101

REACTIONS (1)
  - NEOPLASM MALIGNANT [None]
